FAERS Safety Report 5051810-1 (Version None)
Quarter: 2006Q3

REPORT INFORMATION
  Report Type: 
  Country: None (occurrence: None)
  Receive Date: 20060713
  Receipt Date: 20060713
  Transmission Date: 20061208
  Serious: Yes (Hospitalization)
  Sender: FDA-Public Use
  Company Number: None

PATIENT
  Sex: Female
  Weight: 98.4 kg

DRUGS (2)
  1. CARBOPLATIN [Suspect]
     Dosage: 524 MG
     Dates: start: 20060629
  2. TAXOL [Suspect]
     Dosage: 355 MG
     Dates: start: 20060629

REACTIONS (4)
  - DIARRHOEA [None]
  - ELECTROCARDIOGRAM T WAVE ABNORMAL [None]
  - ORTHOSTATIC HYPOTENSION [None]
  - SYNCOPE VASOVAGAL [None]
